FAERS Safety Report 18517596 (Version 5)
Quarter: 2021Q1

REPORT INFORMATION
  Report Type: Report from Study
  Country: US (occurrence: US)
  Receive Date: 20201118
  Receipt Date: 20210310
  Transmission Date: 20210419
  Serious: No
  Sender: FDA-Public Use
  Company Number: NVSC2020US300992

PATIENT
  Sex: Female

DRUGS (5)
  1. COSENTYX [Suspect]
     Active Substance: SECUKINUMAB
     Indication: PSORIASIS
     Dosage: UNK, QD
     Route: 058
     Dates: start: 20201029
  2. COSENTYX [Suspect]
     Active Substance: SECUKINUMAB
     Dosage: UNK, QD
     Route: 058
     Dates: start: 20201030
  3. COSENTYX [Suspect]
     Active Substance: SECUKINUMAB
     Dosage: UNK, QD
     Route: 058
     Dates: start: 20201031
  4. COSENTYX [Suspect]
     Active Substance: SECUKINUMAB
     Dosage: 300 MG, QW
     Route: 058
  5. COSENTYX [Suspect]
     Active Substance: SECUKINUMAB
     Dosage: UNK, QMO
     Route: 058
     Dates: start: 20201029

REACTIONS (3)
  - Condition aggravated [Unknown]
  - Inappropriate schedule of product administration [Unknown]
  - Accidental overdose [Unknown]
